FAERS Safety Report 19690889 (Version 1)
Quarter: 2021Q3

REPORT INFORMATION
  Report Type: Spontaneous
  Country: US (occurrence: US)
  Receive Date: 20210812
  Receipt Date: 20210812
  Transmission Date: 20211014
  Serious: No
  Sender: FDA-Public Use
  Company Number: None

PATIENT
  Sex: Male
  Weight: 98.1 kg

DRUGS (14)
  1. ASPIRIN 81 [Concomitant]
     Active Substance: ASPIRIN
  2. FENOFIBRATE. [Concomitant]
     Active Substance: FENOFIBRATE
  3. LANTUS SOLOSTAR [Concomitant]
     Active Substance: INSULIN GLARGINE
  4. NEORAL [Concomitant]
     Active Substance: CYCLOSPORINE
  5. PRAVASTATIN. [Concomitant]
     Active Substance: PRAVASTATIN
  6. LEVOTHYROXINE. [Concomitant]
     Active Substance: LEVOTHYROXINE
  7. REPAGLINIDE. [Concomitant]
     Active Substance: REPAGLINIDE
  8. TRULICITY [Concomitant]
     Active Substance: DULAGLUTIDE
  9. LOVAZA [Concomitant]
     Active Substance: OMEGA-3-ACID ETHYL ESTERS
  10. SULFAMETHOXAZOLE?TRIMETHOPRIM [Concomitant]
     Active Substance: SULFAMETHOXAZOLE\TRIMETHOPRIM
  11. MEKTOVI [Suspect]
     Active Substance: BINIMETINIB
     Indication: MALIGNANT MELANOMA
     Route: 048
  12. LISINOPRIL. [Concomitant]
     Active Substance: LISINOPRIL
  13. METOPROLOL TARTRATE. [Concomitant]
     Active Substance: METOPROLOL TARTRATE
  14. SIROLIMUS. [Concomitant]
     Active Substance: SIROLIMUS

REACTIONS (4)
  - Rash [None]
  - Wrong schedule [None]
  - Product administration error [None]
  - Wrong dose [None]
